FAERS Safety Report 15226922 (Version 1)
Quarter: 2018Q3

REPORT INFORMATION
  Report Type: Spontaneous
  Country: PL (occurrence: PL)
  Receive Date: 20180801
  Receipt Date: 20180801
  Transmission Date: 20181010
  Serious: Yes (Death, Other)
  Sender: FDA-Public Use
  Company Number: PHHY2018PL060835

PATIENT
  Age: 68 Year
  Sex: Female
  Weight: 73.4 kg

DRUGS (3)
  1. METHOTREXATE. [Suspect]
     Active Substance: METHOTREXATE
     Indication: RHEUMATOID ARTHRITIS
     Route: 065
  2. ROACTEMRA [Suspect]
     Active Substance: TOCILIZUMAB
     Indication: RHEUMATOID ARTHRITIS
     Dosage: 4TH INFUSION
     Route: 042
  3. ROACTEMRA [Suspect]
     Active Substance: TOCILIZUMAB
     Dosage: UNK
     Route: 042

REACTIONS (16)
  - Death [Fatal]
  - Metastases to liver [Unknown]
  - Red blood cell sedimentation rate decreased [Unknown]
  - Neoplasm [Unknown]
  - Ascites [Unknown]
  - Blood bilirubin increased [Unknown]
  - Anaemia [Unknown]
  - Faeces discoloured [Unknown]
  - Blood alkaline phosphatase increased [Unknown]
  - Haematochezia [Unknown]
  - Weight increased [Unknown]
  - Yellow skin [Unknown]
  - C-reactive protein decreased [Unknown]
  - Blood creatinine increased [Unknown]
  - Glomerular filtration rate decreased [Unknown]
  - Platelet count decreased [Unknown]

NARRATIVE: CASE EVENT DATE: 20180606
